FAERS Safety Report 7585527-6 (Version None)
Quarter: 2011Q2

REPORT INFORMATION
  Report Type: 
  Country: None (occurrence: None)
  Receive Date: 20110624
  Receipt Date: 20110610
  Transmission Date: 20111010
  Serious: Yes (Hospitalization, Other)
  Sender: FDA-Public Use
  Company Number: 1000021202

PATIENT
  Age: 71 Year
  Sex: Male
  Weight: 90 kg

DRUGS (14)
  1. BUDESONIDE WITH FORMOTEROL FUMARATE (BUDESONIDE, FORMOTEROL FUMARATE) [Concomitant]
  2. DIGITOXIN (DIGITOXIN) (DIGITOXIN) [Concomitant]
  3. VALSARTAN (VALSARTAN) (VALSARTAN) [Concomitant]
  4. MARCOUMAR (PHENPROCOUMON) (PHENPROCOUMON) [Concomitant]
  5. FUROSEMIDE [Concomitant]
  6. MIRTAZIPIN (MIRTAZAPINE) (MIRTAZAPINE) [Concomitant]
  7. VERAPAMIL [Concomitant]
  8. ROFLUMILAST (ROFLUMILAST) (TABLETS) [Suspect]
     Indication: CHRONIC OBSTRUCTIVE PULMONARY DISEASE
     Dosage: 500 MCG, ORAL
     Route: 048
     Dates: start: 20110223, end: 20110517
  9. ALLOPURINOL [Concomitant]
  10. LEVEMIR [Concomitant]
  11. NOVORAPID (INSULIN ASPART) (INSULIN ASPART) [Concomitant]
  12. PANTOPRAZOL (PANTOPRAZOLE SODIUM) (PANTOPRAZOLE SODIUM) [Concomitant]
  13. PRAVASTATIN [Concomitant]
  14. TIOTROPIUM ROMIDE (TIOTROPIUM BROMIDE) (TIOTROPIUM BROMIDE) [Concomitant]

REACTIONS (12)
  - COLONIC POLYP [None]
  - DYSPNOEA EXERTIONAL [None]
  - ANAEMIA [None]
  - DECREASED APPETITE [None]
  - DIVERTICULUM [None]
  - CHEST DISCOMFORT [None]
  - ASTHENIA [None]
  - DIZZINESS [None]
  - GASTROINTESTINAL HAEMORRHAGE [None]
  - FOOD AVERSION [None]
  - URINARY TRACT INFECTION ENTEROCOCCAL [None]
  - MELAENA [None]
